FAERS Safety Report 12258264 (Version 2)
Quarter: 2016Q2

REPORT INFORMATION
  Report Type: Spontaneous
  Country: US (occurrence: US)
  Receive Date: 20160412
  Receipt Date: 20160616
  Transmission Date: 20160815
  Serious: No
  Sender: FDA-Public Use
  Company Number: US-PFIZER INC-2016181480

PATIENT
  Age: 55 Year
  Sex: Female

DRUGS (2)
  1. NEURONTIN [Suspect]
     Active Substance: GABAPENTIN
     Indication: NEUROPATHY PERIPHERAL
     Dosage: 300 MG, 3X/DAY
     Dates: start: 20150922
  2. NEURONTIN [Suspect]
     Active Substance: GABAPENTIN
     Dosage: 300 MG, 1X/DAY (TOOK ONE PILL NIGHTLY)

REACTIONS (5)
  - Somnolence [Unknown]
  - Intentional product misuse [Unknown]
  - Drug intolerance [Unknown]
  - Fatigue [Unknown]
  - Drug ineffective for unapproved indication [Unknown]
